FAERS Safety Report 6285139-0 (Version None)
Quarter: 2009Q3

REPORT INFORMATION
  Report Type: 
  Country: None (occurrence: None)
  Receive Date: 20090727
  Receipt Date: 20090715
  Transmission Date: 20100115
  Serious: Yes (Hospitalization)
  Sender: FDA-Public Use
  Company Number: GB-PFIZER INC-2009240479

PATIENT
  Age: 70 Year

DRUGS (3)
  1. LYRICA [Suspect]
     Indication: NEURALGIA
     Dosage: 25 MG, UNK
     Route: 048
     Dates: start: 20090601, end: 20090702
  2. OXYCONTIN [Concomitant]
     Indication: CANCER PAIN
  3. OXYNORM [Concomitant]
     Indication: CANCER PAIN

REACTIONS (2)
  - CONFUSIONAL STATE [None]
  - FALL [None]
